FAERS Safety Report 12476405 (Version 2)
Quarter: 2016Q2

REPORT INFORMATION
  Report Type: Spontaneous
  Country: US (occurrence: US)
  Receive Date: 20160617
  Receipt Date: 20160630
  Transmission Date: 20160815
  Serious: Yes (Hospitalization, Other)
  Sender: FDA-Public Use
  Company Number: US-CELGENEUS-USA-2016051622

PATIENT
  Sex: Female

DRUGS (8)
  1. CYCLOPHOSPHAMIDE. [Concomitant]
     Active Substance: CYCLOPHOSPHAMIDE
     Indication: PRODUCT USED FOR UNKNOWN INDICATION
     Route: 065
  2. THALOMID [Suspect]
     Active Substance: THALIDOMIDE
     Route: 048
     Dates: start: 201103
  3. ETOPOSIDE. [Concomitant]
     Active Substance: ETOPOSIDE
     Route: 065
  4. THALOMID [Suspect]
     Active Substance: THALIDOMIDE
     Dosage: 100 MILLIGRAM
     Route: 048
     Dates: start: 201604, end: 201605
  5. THALOMID [Suspect]
     Active Substance: THALIDOMIDE
     Dosage: 50-200MG
     Route: 048
     Dates: start: 201103, end: 201105
  6. ETOPOSIDE. [Concomitant]
     Active Substance: ETOPOSIDE
     Indication: PRODUCT USED FOR UNKNOWN INDICATION
     Route: 065
  7. THALOMID [Suspect]
     Active Substance: THALIDOMIDE
     Indication: EPENDYMOMA
     Route: 048
     Dates: start: 201102
  8. THALOMID [Suspect]
     Active Substance: THALIDOMIDE
     Route: 048
     Dates: start: 201102

REACTIONS (5)
  - Drug ineffective [Not Recovered/Not Resolved]
  - Hypoaesthesia [Unknown]
  - Malaise [Unknown]
  - Paraesthesia [Unknown]
  - Ependymoma [Unknown]

NARRATIVE: CASE EVENT DATE: 2016
